FAERS Safety Report 5940488-8 (Version None)
Quarter: 2008Q4

REPORT INFORMATION
  Report Type: 
  Country: None (occurrence: None)
  Receive Date: 20081030
  Receipt Date: 20081015
  Transmission Date: 20090506
  Serious: Yes (Other)
  Sender: FDA-Public Use
  Company Number: 2008S1018886

PATIENT
  Age: 73 Year
  Sex: Male

DRUGS (7)
  1. LOBIVON (NEBIVOLOL HYDROCHLORIDE) [Suspect]
     Indication: HYPERTENSION
     Dosage: 5 MG; DAILY; ORAL
     Route: 048
     Dates: start: 20080101, end: 20080217
  2. LANTUS [Suspect]
     Indication: DIABETES MELLITUS
     Dosage: 10 ML; SUBCUTANEOUS
     Route: 058
     Dates: start: 20030101, end: 20080217
  3. DIGOXIN [Concomitant]
  4. ACOVIL [Concomitant]
  5. OMNIC OCAS [Concomitant]
  6. SEGURIL [Concomitant]
  7. . [Concomitant]

REACTIONS (1)
  - SHOCK HYPOGLYCAEMIC [None]
